FAERS Safety Report 4791862-7 (Version None)
Quarter: 2005Q4

REPORT INFORMATION
  Report Type: 
  Country: None (occurrence: None)
  Receive Date: 20051005
  Receipt Date: 20050922
  Transmission Date: 20060501
  Serious: Yes (Life-Threatening)
  Sender: FDA-Public Use
  Company Number: 2005131607

PATIENT
  Age: 52 Year
  Sex: Female

DRUGS (6)
  1. LYRICA [Suspect]
     Indication: KYPHOSCOLIOSIS
     Dosage: 75 MG (75 MG, 1 IN 1 D), ORAL
     Route: 048
     Dates: start: 20050201, end: 20050320
  2. PROPOXYPHENE HCL [Suspect]
     Indication: KYPHOSCOLIOSIS
     Dosage: 300 MG (300 MG, 1I N 1 D)
     Dates: start: 20050201
  3. FLUOXETINE [Concomitant]
  4. SPIRONOLACTONE W/ HYDROCHLOROTHIAZIDE [Concomitant]
  5. ALPRAZOLAM [Concomitant]
  6. LANSOPRAZOL (LANSOPRAZOLE) [Concomitant]

REACTIONS (6)
  - ALANINE AMINOTRANSFERASE INCREASED [None]
  - ASPARTATE AMINOTRANSFERASE INCREASED [None]
  - ASTHENIA [None]
  - GAMMA-GLUTAMYLTRANSFERASE INCREASED [None]
  - HEPATIC ENZYME ABNORMAL [None]
  - MALAISE [None]
